FAERS Safety Report 7483478-9 (Version None)
Quarter: 2011Q2

REPORT INFORMATION
  Report Type: 
  Country: None (occurrence: None)
  Receive Date: 20110517
  Receipt Date: 20110504
  Transmission Date: 20111010
  Serious: Yes (Other)
  Sender: FDA-Public Use
  Company Number: US-JNJFOC-20110505203

PATIENT
  Age: 73 Year
  Sex: Male
  Weight: 90.72 kg

DRUGS (4)
  1. ARESTIN [Suspect]
     Indication: PRODUCT USED FOR UNKNOWN INDICATION
     Route: 065
     Dates: start: 20110503
  2. ARESTIN [Suspect]
     Dosage: 8 PLACEMENTS
     Route: 065
     Dates: start: 20080101
  3. VITAMIN D [Concomitant]
     Indication: PRODUCT USED FOR UNKNOWN INDICATION
     Route: 050
  4. SALMON OIL [Concomitant]
     Indication: PRODUCT USED FOR UNKNOWN INDICATION
     Route: 050

REACTIONS (4)
  - VISUAL IMPAIRMENT [None]
  - CONFUSIONAL STATE [None]
  - EXPRESSIVE LANGUAGE DISORDER [None]
  - PARAESTHESIA ORAL [None]
